FAERS Safety Report 4871572-8 (Version None)
Quarter: 2005Q4

REPORT INFORMATION
  Report Type: 
  Country: None (occurrence: None)
  Receive Date: 20051230
  Receipt Date: 20051219
  Transmission Date: 20060501
  Serious: Yes (Hospitalization)
  Sender: FDA-Public Use
  Company Number: CA-2005-027251

PATIENT
  Age: 56 Year
  Sex: Female
  Weight: 85 kg

DRUGS (8)
  1. FLUDARABINE PHOSPHATE [Suspect]
     Indication: CHRONIC LYMPHOCYTIC LEUKAEMIA
     Dosage: 50 MG, CYCLES X 3 DAYS, INTRAVENOUS
     Route: 042
     Dates: start: 20051207, end: 20051209
  2. CYCLOPHOSPHAMIDE [Suspect]
     Indication: CHRONIC LYMPHOCYTIC LEUKAEMIA
     Dosage: 470 MG, CYCLES X 3 DAYS, INTRAVENOUS
     Route: 042
     Dates: start: 20051207, end: 20051209
  3. VITAMIN E [Concomitant]
  4. CALCIUM (CALCIUM) [Concomitant]
  5. VITAMIN D [Concomitant]
  6. PROCHLORPERAZINE MALEATE [Concomitant]
  7. ONDANSETRON [Concomitant]
  8. SENOKOT (SENNA ALEXANDRINA FRUIT) [Concomitant]

REACTIONS (1)
  - PANCREATITIS [None]
